FAERS Safety Report 18004054 (Version 4)
Quarter: 2020Q4

REPORT INFORMATION
  Report Type: Other
  Country: ZA (occurrence: ZA)
  Receive Date: 20200710
  Receipt Date: 20201112
  Transmission Date: 20210113
  Serious: Yes (Other)
  Sender: FDA-Public Use
  Company Number: ZA-ROCHE-2639224

PATIENT
  Age: 82 Year
  Sex: Female

DRUGS (6)
  1. LUCENTIS [Suspect]
     Active Substance: RANIBIZUMAB
     Route: 050
  2. LUCENTIS [Suspect]
     Active Substance: RANIBIZUMAB
     Dosage: 0.5 MG (6 TO 8 WEEKLY)
     Route: 050
     Dates: start: 20190130
  3. LUCENTIS [Suspect]
     Active Substance: RANIBIZUMAB
     Route: 050
     Dates: start: 20190304
  4. LUCENTIS [Suspect]
     Active Substance: RANIBIZUMAB
     Route: 050
  5. LUCENTIS [Suspect]
     Active Substance: RANIBIZUMAB
     Route: 050
     Dates: start: 20190404
  6. LUCENTIS [Suspect]
     Active Substance: RANIBIZUMAB
     Indication: AGE-RELATED MACULAR DEGENERATION
     Route: 050
     Dates: start: 201812

REACTIONS (5)
  - Retinal oedema [Unknown]
  - Retinal exudates [Not Recovered/Not Resolved]
  - Visual acuity reduced [Unknown]
  - Product leakage [Unknown]
  - Retinal thickening [Unknown]

NARRATIVE: CASE EVENT DATE: 20190130
